FAERS Safety Report 14017766 (Version 1)
Quarter: 2017Q3

REPORT INFORMATION
  Report Type: Spontaneous
  Country: US (occurrence: None)
  Receive Date: 20170927
  Receipt Date: 20170927
  Transmission Date: 20171128
  Serious: Yes (Life-Threatening)
  Sender: FDA-Public Use
  Company Number: None

PATIENT
  Age: 75 Year
  Sex: Male
  Weight: 81.65 kg

DRUGS (10)
  1. ALLOPURINOL. [Concomitant]
     Active Substance: ALLOPURINOL
  2. SIMVASTATIN. [Concomitant]
     Active Substance: SIMVASTATIN
  3. LEVOTHYROXINE. [Concomitant]
     Active Substance: LEVOTHYROXINE
  4. DEXILANT [Concomitant]
     Active Substance: DEXLANSOPRAZOLE
  5. ECOTRIN [Concomitant]
     Active Substance: ASPIRIN
  6. VALSARTAN TABLETS, USP [Suspect]
     Active Substance: VALSARTAN
     Indication: HYPERTENSION
     Route: 048
     Dates: start: 201601, end: 201708
  7. IRON GLUCONATE [Concomitant]
  8. COLCHICINE. [Concomitant]
     Active Substance: COLCHICINE
  9. HYDRALAZINE [Concomitant]
     Active Substance: HYDRALAZINE HYDROCHLORIDE
  10. VALSARTAN TABLETS, USP [Suspect]
     Active Substance: VALSARTAN
     Indication: HYPERTENSION
     Dosage: 160MG 1 TABLET EVERY MORNING BY MOUTH
     Route: 048
     Dates: start: 201601, end: 201708

REACTIONS (6)
  - Dyspnoea [None]
  - Blood pressure inadequately controlled [None]
  - Anaemia [None]
  - Pain [None]
  - Acute kidney injury [None]
  - Aortic valve disease [None]

NARRATIVE: CASE EVENT DATE: 201705
